FAERS Safety Report 9527836 (Version 1)
Quarter: 2013Q1

REPORT INFORMATION
  Report Type: Spontaneous
  Country: US (occurrence: None)
  Receive Date: 20130314
  Receipt Date: 20130314
  Transmission Date: 20140127
  Serious: Yes (Other)
  Sender: FDA-Public Use
  Company Number: 1211USA001219

PATIENT
  Age: 48 Year
  Sex: Female

DRUGS (3)
  1. PEGINTRON [Suspect]
     Indication: HEPATITIS C
     Dosage: UNK
     Dates: start: 20121016
  2. RIBAVIRIN (RIBAVIRIN) CAPSULE [Suspect]
     Indication: HEPATITIS C
     Dosage: UNK, ORAL
     Route: 048
     Dates: start: 20121016
  3. VICTRELIS [Suspect]
     Indication: HEPATITIS C
     Dosage: UNK
     Dates: start: 20121129

REACTIONS (14)
  - Memory impairment [None]
  - Anxiety [None]
  - Injection site reaction [None]
  - Pruritus [None]
  - Dysgeusia [None]
  - Fatigue [None]
  - Anaemia [None]
  - Headache [None]
  - Pain [None]
  - Pain [None]
  - Ageusia [None]
  - Abdominal pain upper [None]
  - Hepatic pain [None]
  - Musculoskeletal chest pain [None]
